FAERS Safety Report 11263057 (Version 1)
Quarter: 2015Q3

REPORT INFORMATION
  Report Type: Spontaneous
  Country: US (occurrence: US)
  Receive Date: 20150710
  Receipt Date: 20150710
  Transmission Date: 20151125
  Serious: Yes (Other)
  Sender: FDA-Public Use
  Company Number: PHEH2015US013003

PATIENT
  Age: 70 Year
  Sex: Female

DRUGS (1)
  1. RECLAST [Suspect]
     Active Substance: ZOLEDRONIC ACID
     Indication: PRODUCT USED FOR UNKNOWN INDICATION
     Dosage: UNK
     Route: 042
     Dates: start: 20150407

REACTIONS (19)
  - Burning sensation [Unknown]
  - Chills [Unknown]
  - Diarrhoea haemorrhagic [Unknown]
  - Eye burns [Unknown]
  - Pyrexia [Unknown]
  - Intestinal ulcer [Unknown]
  - Movement disorder [Unknown]
  - Dysuria [Unknown]
  - Secretion discharge [Unknown]
  - Rash pruritic [Unknown]
  - Gastric ulcer [Unknown]
  - Renal disorder [Unknown]
  - Confusional state [Unknown]
  - Drooling [Unknown]
  - Oesophageal spasm [Unknown]
  - Asthenia [Unknown]
  - Nausea [Unknown]
  - Amnesia [Unknown]
  - Dyspepsia [Unknown]

NARRATIVE: CASE EVENT DATE: 20150407
